FAERS Safety Report 9976415 (Version 1)
Quarter: 2014Q1

REPORT INFORMATION
  Report Type: Report from Study
  Country: US (occurrence: US)
  Receive Date: 20140306
  Receipt Date: 20140306
  Transmission Date: 20141002
  Serious: No
  Sender: FDA-Public Use
  Company Number: US-ABBVIE-13P-163-1164354-00

PATIENT
  Age: 58 Year
  Sex: Male

DRUGS (6)
  1. HUMIRA [Suspect]
     Indication: CROHN^S DISEASE
     Dates: start: 20130927, end: 20130927
  2. HUMIRA [Suspect]
     Dates: start: 20131011, end: 20131011
  3. HUMIRA [Suspect]
     Dosage: MAINTENANCE DOSE
     Dates: start: 20131025
  4. PAIN PILL- UNKNOWN MEDICATION [Suspect]
     Indication: ARTHRITIS
     Dosage: HE HAS ONLY TAKEN ^2^
     Dates: start: 201310
  5. UNKNOWN MEDICATION- BLOOD PRESSURE MEDS [Concomitant]
     Indication: HYPERTENSION
     Dosage: THREE KINDS OF
  6. UNKNOWN MEDICATION- BLOOD PRESSURE MEDS [Concomitant]
     Indication: HYPERTENSION
     Dosage: THREE KINDS OF

REACTIONS (3)
  - Hypersomnia [Unknown]
  - Nausea [Not Recovered/Not Resolved]
  - Retching [Not Recovered/Not Resolved]
